FAERS Safety Report 7102512-9 (Version None)
Quarter: 2010Q4

REPORT INFORMATION
  Report Type: 
  Country: None (occurrence: None)
  Receive Date: 20101115
  Receipt Date: 20101104
  Transmission Date: 20110411
  Serious: Yes (Other)
  Sender: FDA-Public Use
  Company Number: JP-JNJFOC-20101102120

PATIENT
  Sex: Female
  Weight: 46 kg

DRUGS (12)
  1. DOXORUBICIN HYDROCHLORIDE [Suspect]
     Indication: OVARIAN CANCER RECURRENT
     Route: 042
  2. DOXORUBICIN HYDROCHLORIDE [Suspect]
     Route: 042
  3. DOXORUBICIN HYDROCHLORIDE [Suspect]
     Route: 042
  4. DOXORUBICIN HYDROCHLORIDE [Suspect]
     Route: 042
  5. DOXORUBICIN HYDROCHLORIDE [Suspect]
     Route: 042
  6. PYDOXAL [Concomitant]
     Indication: PROPHYLAXIS
     Route: 048
  7. HACHIAZULE [Concomitant]
     Indication: PROPHYLAXIS
     Route: 049
  8. RAMELTEON [Concomitant]
     Indication: PROPHYLAXIS
     Route: 048
  9. MAGLAX [Concomitant]
     Route: 048
  10. MUCOSTA [Concomitant]
     Route: 048
  11. BETAMETHASONE [Concomitant]
     Route: 061
  12. ZYRTEC [Concomitant]
     Route: 048

REACTIONS (1)
  - INJECTION SITE ERYTHEMA [None]
